FAERS Safety Report 24071763 (Version 1)
Quarter: 2024Q3

REPORT INFORMATION
  Report Type: Report from Study
  Country: US (occurrence: US)
  Receive Date: 20240710
  Receipt Date: 20240710
  Transmission Date: 20241017
  Serious: No
  Sender: ROCHE
  Company Number: US-ROCHE-3148948

PATIENT
  Age: 68 Year
  Sex: Male

DRUGS (20)
  1. ALECENSA [Suspect]
     Active Substance: ALECTINIB HYDROCHLORIDE
     Indication: Lung neoplasm malignant
     Dosage: 4 CAPSULE BY MOUTH 2 TIMES DAILY
     Route: 048
     Dates: start: 20220719
  2. ALECENSA [Suspect]
     Active Substance: ALECTINIB HYDROCHLORIDE
     Dosage: 4 CAPSULE BY MOUTH 2 TIMES DAILY
     Route: 048
     Dates: start: 20240423
  3. HEMLIBRA [Suspect]
     Active Substance: EMICIZUMAB-KXWH
     Indication: Prophylaxis
     Route: 058
     Dates: start: 20220720
  4. HEMLIBRA [Suspect]
     Active Substance: EMICIZUMAB-KXWH
     Route: 058
     Dates: start: 20240123
  5. TYLENOL [Concomitant]
     Active Substance: ACETAMINOPHEN
     Dates: start: 20150410
  6. NORVASC [Concomitant]
     Active Substance: AMLODIPINE BESYLATE
     Dates: start: 20211011
  7. AMOXIL [Concomitant]
     Active Substance: AMOXICILLIN
  8. LIPITOR [Concomitant]
     Active Substance: ATORVASTATIN CALCIUM
  9. CELEBREX [Concomitant]
     Active Substance: CELECOXIB
  10. NOVOSEVEN RT [Concomitant]
     Active Substance: COAGULATION FACTOR VIIA RECOMBINANT HUMAN
  11. GLUCOTROL XL [Concomitant]
     Active Substance: GLIPIZIDE
  12. HEPARIN [Concomitant]
     Active Substance: HEPARIN SODIUM
  13. HYDRODIURIL [Concomitant]
     Active Substance: HYDROCHLOROTHIAZIDE
  14. ACULAR [Concomitant]
     Active Substance: KETOROLAC TROMETHAMINE
  15. ZESTRIL [Concomitant]
     Active Substance: LISINOPRIL
  16. GLUCOPHAGE [Concomitant]
     Active Substance: METFORMIN HYDROCHLORIDE
  17. VIGAMOX [Concomitant]
     Active Substance: MOXIFLOXACIN HYDROCHLORIDE
  18. PRED FORTE [Concomitant]
     Active Substance: PREDNISOLONE ACETATE
  19. BACTRIM DS [Concomitant]
     Active Substance: SULFAMETHOXAZOLE\TRIMETHOPRIM
  20. ULTRAM [Concomitant]
     Active Substance: TRAMADOL HYDROCHLORIDE

REACTIONS (2)
  - Off label use [Unknown]
  - No adverse event [Unknown]
